FAERS Safety Report 5428402-5 (Version None)
Quarter: 2007Q3

REPORT INFORMATION
  Report Type: 
  Country: None (occurrence: None)
  Receive Date: 20070828
  Receipt Date: 20070808
  Transmission Date: 20080115
  Serious: Yes (Hospitalization)
  Sender: FDA-Public Use
  Company Number: PL-MERCK-0708POL00008

PATIENT
  Age: 52 Year
  Sex: Female

DRUGS (7)
  1. DIETARY SUPPLEMENT (UNSPECIFIED) [Concomitant]
     Route: 048
  2. CHOLESTYRAMINE RESIN [Concomitant]
     Route: 048
     Dates: start: 19850301, end: 19891001
  3. CHOLESTYRAMINE RESIN [Concomitant]
     Route: 048
     Dates: start: 19891001, end: 19920101
  4. CHOLESTYRAMINE RESIN [Concomitant]
     Route: 048
     Dates: start: 19920101, end: 19940601
  5. FENOFIBRATE [Concomitant]
     Route: 048
     Dates: start: 19850301, end: 19890701
  6. FENOFIBRATE [Concomitant]
     Route: 048
     Dates: start: 19920101, end: 19940701
  7. ZOCOR [Suspect]
     Route: 048
     Dates: start: 19891001, end: 19920101

REACTIONS (5)
  - ALANINE AMINOTRANSFERASE INCREASED [None]
  - ARTHRALGIA [None]
  - ASPARTATE AMINOTRANSFERASE INCREASED [None]
  - BLOOD CREATINE PHOSPHOKINASE INCREASED [None]
  - POLYMYOSITIS [None]
